FAERS Safety Report 9077255 (Version 2)
Quarter: 2013Q1

REPORT INFORMATION
  Report Type: Spontaneous
  Country: CZ (occurrence: CZ)
  Receive Date: 20130130
  Receipt Date: 20130321
  Transmission Date: 20140127
  Serious: Yes (Other)
  Sender: FDA-Public Use
  Company Number: CZ-MERCK-1301CZE011068

PATIENT
  Sex: Female

DRUGS (3)
  1. VICTRELIS [Suspect]
     Indication: HEPATITIS C
     Route: 048
  2. PEGINTRON [Suspect]
     Indication: HEPATITIS C
  3. REBETOL [Suspect]
     Indication: HEPATITIS C
     Route: 048

REACTIONS (2)
  - Vomiting [Recovered/Resolved]
  - Hepatitis C [Unknown]
